FAERS Safety Report 6341013-2 (Version None)
Quarter: 2009Q3

REPORT INFORMATION
  Report Type: 
  Country: None (occurrence: None)
  Receive Date: 20090904
  Receipt Date: 20090901
  Transmission Date: 20100115
  Serious: Yes (Hospitalization, Other)
  Sender: FDA-Public Use
  Company Number: A0805367A

PATIENT
  Age: 18 Year
  Sex: Female

DRUGS (13)
  1. LAMOTRIGINE [Suspect]
     Indication: BIPOLAR DISORDER
     Dosage: 25MG PER DAY
     Route: 048
     Dates: start: 20090101
  2. LAMICTAL [Suspect]
     Route: 048
     Dates: start: 20061101, end: 20090101
  3. PAXIL [Suspect]
     Indication: DEPRESSION
     Dosage: 10MG PER DAY
     Route: 048
     Dates: start: 19981001, end: 20000101
  4. BUPROPION HYDROCHLORIDE [Suspect]
     Indication: DEPRESSION
     Dosage: 150MG PER DAY
     Route: 048
     Dates: start: 20040101, end: 20081201
  5. LITHIUM [Suspect]
     Dates: start: 19981201
  6. LITHIUM [Concomitant]
  7. BUPROPION HYDROCHLORIDE [Concomitant]
     Route: 048
  8. TRAZODONE [Concomitant]
  9. RISPERIDONE [Concomitant]
  10. CLONAZEPAM [Concomitant]
  11. ZOLOFT [Concomitant]
  12. SEROQUEL [Concomitant]
  13. HERBS [Concomitant]

REACTIONS (29)
  - ABNORMAL DREAMS [None]
  - AGITATION [None]
  - ALLERGY TO CHEMICALS [None]
  - ANXIETY [None]
  - COLD SWEAT [None]
  - DEPRESSION [None]
  - DISTURBANCE IN ATTENTION [None]
  - FEELING ABNORMAL [None]
  - FEELING COLD [None]
  - HEADACHE [None]
  - HYPERAESTHESIA [None]
  - IMPAIRED HEALING [None]
  - INSOMNIA [None]
  - IRRITABILITY [None]
  - LOSS OF EMPLOYMENT [None]
  - MOOD ALTERED [None]
  - MYALGIA [None]
  - NAUSEA [None]
  - NERVOUSNESS [None]
  - PARAESTHESIA [None]
  - PHOTOSENSITIVITY REACTION [None]
  - SCAR [None]
  - SKIN DISORDER [None]
  - SUICIDAL IDEATION [None]
  - SUICIDE ATTEMPT [None]
  - TREATMENT NONCOMPLIANCE [None]
  - VOMITING [None]
  - WEIGHT DECREASED [None]
  - WEIGHT INCREASED [None]
